FAERS Safety Report 14846645 (Version 1)
Quarter: 2018Q2

REPORT INFORMATION
  Report Type: Spontaneous
  Country: US (occurrence: US)
  Receive Date: 20180504
  Receipt Date: 20180504
  Transmission Date: 20180711
  Serious: No
  Sender: FDA-Public Use
  Company Number: US-TEVA-2018-US-888340

PATIENT
  Sex: Female

DRUGS (1)
  1. MUPIROCIN. [Suspect]
     Active Substance: MUPIROCIN
     Indication: SKIN LESION
     Dates: start: 20180405

REACTIONS (2)
  - Tenderness [Unknown]
  - Burning sensation [Unknown]

NARRATIVE: CASE EVENT DATE: 20180405
